FAERS Safety Report 8022615-4 (Version None)
Quarter: 2012Q1

REPORT INFORMATION
  Report Type: 
  Country: None (occurrence: None)
  Receive Date: 20120104
  Receipt Date: 20111227
  Transmission Date: 20120608
  Serious: Yes (Other)
  Sender: FDA-Public Use
  Company Number: JP-VIIV HEALTHCARE LIMITED-B0770058A

PATIENT
  Age: 64 Year
  Sex: Female

DRUGS (5)
  1. DIOVAN [Concomitant]
     Indication: HYPERTENSION
     Dosage: 80MG PER DAY
     Route: 048
     Dates: start: 20100105
  2. CINAL [Concomitant]
     Indication: VITAMIN C DEFICIENCY
     Dosage: 3G PER DAY
     Route: 048
     Dates: start: 20070612
  3. EPZICOM [Suspect]
     Indication: HIV INFECTION
     Dosage: 1IUAX PER DAY
     Route: 048
     Dates: start: 20080909
  4. KALETRA [Suspect]
     Indication: HIV INFECTION
     Dosage: 4IUAX PER DAY
     Route: 048
     Dates: start: 20090624
  5. REYATAZ [Concomitant]
     Indication: HIV INFECTION
     Dosage: 400MG PER DAY
     Route: 048
     Dates: start: 20080909, end: 20090623

REACTIONS (4)
  - TREMOR [None]
  - BASEDOW'S DISEASE [None]
  - IMMUNE RECONSTITUTION SYNDROME [None]
  - WEIGHT DECREASED [None]
